FAERS Safety Report 7553160-8 (Version None)
Quarter: 2011Q2

REPORT INFORMATION
  Report Type: 
  Country: None (occurrence: None)
  Receive Date: 20110616
  Receipt Date: 20110613
  Transmission Date: 20111010
  Serious: Yes (Hospitalization)
  Sender: FDA-Public Use
  Company Number: UA-BRISTOL-MYERS SQUIBB COMPANY-14918114

PATIENT
  Age: 73 Year
  Sex: Female

DRUGS (3)
  1. PLACEBO [Suspect]
     Indication: THROMBOSIS PROPHYLAXIS
     Dosage: INTERRUPTED ON 15DEC09
     Route: 048
     Dates: start: 20091123, end: 20091215
  2. WARFARIN SODIUM [Suspect]
     Indication: THROMBOSIS PROPHYLAXIS
     Dosage: INTERRUPTED ON 15DEC09
     Route: 048
     Dates: start: 20091123, end: 20091215
  3. AMIODARONE HCL [Concomitant]
     Dates: start: 20091102

REACTIONS (1)
  - HAEMATOMA INFECTION [None]
